FAERS Safety Report 8715665 (Version 2)
Quarter: 2014Q1

REPORT INFORMATION
  Report Type: Spontaneous
  Country: US (occurrence: US)
  Receive Date: 20120809
  Receipt Date: 20140205
  Transmission Date: 20141002
  Serious: Yes (Hospitalization, Other)
  Sender: FDA-Public Use
  Company Number: US-BAYER-2012-080625

PATIENT
  Age: 33 Year
  Sex: Female
  Weight: 108.84 kg

DRUGS (2)
  1. MIRENA [Suspect]
     Indication: CONTRACEPTION
     Dosage: 20 MCG/24HR, CONT
     Route: 015
     Dates: start: 20091023, end: 201108
  2. MIRENA [Suspect]
     Indication: MENORRHAGIA

REACTIONS (10)
  - Uterine perforation [None]
  - Abdominal pain [None]
  - Peritonitis [None]
  - Injury [None]
  - Pain [None]
  - Emotional distress [None]
  - Device dislocation [None]
  - Back pain [None]
  - Fibromyalgia [None]
  - Depression [None]
